FAERS Safety Report 10399218 (Version 1)
Quarter: 2014Q3

REPORT INFORMATION
  Report Type: Spontaneous
  Country: EE (occurrence: EE)
  Receive Date: 20140821
  Receipt Date: 20140821
  Transmission Date: 20150326
  Serious: Yes (Hospitalization, Disabling)
  Sender: FDA-Public Use
  Company Number: EE-JNJFOC-20140818992

PATIENT
  Age: 57 Year
  Sex: Male
  Weight: 80 kg

DRUGS (5)
  1. REMICADE [Suspect]
     Active Substance: INFLIXIMAB
     Indication: ANKYLOSING SPONDYLITIS
     Route: 042
     Dates: start: 20070125
  2. TREXAN METHOTREXATE [Suspect]
     Active Substance: METHOTREXATE SODIUM
     Indication: ANKYLOSING SPONDYLITIS
     Dosage: MORE THAN YEARS, EVERY WEEK
     Route: 065
     Dates: start: 20050601
  3. REMICADE [Suspect]
     Active Substance: INFLIXIMAB
     Indication: ANKYLOSING SPONDYLITIS
     Route: 042
     Dates: start: 20140805
  4. REMICADE [Suspect]
     Active Substance: INFLIXIMAB
     Indication: ANKYLOSING SPONDYLITIS
     Route: 042
     Dates: start: 20140527
  5. TREXAN METHOTREXATE [Suspect]
     Active Substance: METHOTREXATE SODIUM
     Indication: ANKYLOSING SPONDYLITIS
     Route: 065
     Dates: start: 2014

REACTIONS (1)
  - Transient global amnesia [Recovered/Resolved with Sequelae]

NARRATIVE: CASE EVENT DATE: 20140719
